FAERS Safety Report 5507156-8 (Version None)
Quarter: 2007Q4

REPORT INFORMATION
  Report Type: 
  Country: None (occurrence: None)
  Receive Date: 20071102
  Receipt Date: 20071023
  Transmission Date: 20080405
  Serious: Yes (Hospitalization)
  Sender: FDA-Public Use
  Company Number: 2007-04771

PATIENT
  Age: 65 Year
  Sex: Female
  Weight: 72.6 kg

DRUGS (3)
  1. LORAZEPAM [Suspect]
     Indication: EMOTIONAL DISORDER
     Dosage: 1 TABLET, DAILY, ORAL
     Route: 048
     Dates: start: 20010101
  2. PROLIXIN DECANOATE [Suspect]
     Indication: EMOTIONAL DISORDER
     Dosage: 1 INJECTION Q MONTH
  3. VISTARIL [Suspect]
     Dosage: ORAL
     Route: 048

REACTIONS (5)
  - DEHYDRATION [None]
  - DRUG INTERACTION [None]
  - TENSION [None]
  - TREMOR [None]
  - VOMITING [None]
